FAERS Safety Report 15389419 (Version 3)
Quarter: 2018Q4

REPORT INFORMATION
  Report Type: Report from Study
  Country: IT (occurrence: IT)
  Receive Date: 20180917
  Receipt Date: 20181029
  Transmission Date: 20190204
  Serious: Yes (Other)
  Sender: FDA-Public Use
  Company Number: IT-TEVA-2018-IT-955120

PATIENT
  Age: 59 Year
  Sex: Female

DRUGS (3)
  1. ADALAT CRONO [Suspect]
     Active Substance: NIFEDIPINE
     Route: 065
  2. SEVIKAR 40 MG/5 MG COMPRESSE RIVESTITE CON FILM [Suspect]
     Active Substance: AMLODIPINE BESYLATE\OLMESARTAN MEDOXOMIL
     Dosage: 40 MG/5 MG
     Route: 048
  3. SIMVASTATIN. [Suspect]
     Active Substance: SIMVASTATIN
     Route: 065

REACTIONS (2)
  - Skin lesion [Recovering/Resolving]
  - Pruritus [Recovering/Resolving]

NARRATIVE: CASE EVENT DATE: 20180702
